FAERS Safety Report 4313596-5 (Version None)
Quarter: 2004Q1

REPORT INFORMATION
  Report Type: 
  Country: None (occurrence: None)
  Receive Date: 20040304
  Receipt Date: 20040213
  Transmission Date: 20041129
  Serious: Yes (Other)
  Sender: FDA-Public Use
  Company Number: US_0402100561

PATIENT
  Age: 47 Year
  Sex: Male
  Weight: 121 kg

DRUGS (8)
  1. XIGRIS [Suspect]
     Indication: SEPSIS
     Dosage: UNK
     Dates: start: 20040124, end: 20040127
  2. IMIPENEM [Concomitant]
  3. AMIKACIN [Concomitant]
  4. VANCOMYCIN [Concomitant]
  5. ACYCLOVIR [Concomitant]
  6. PREDNISONE [Concomitant]
  7. INSULIN [Concomitant]
  8. LEXAPRO [Concomitant]

REACTIONS (3)
  - GASTROINTESTINAL HAEMORRHAGE [None]
  - HAEMOGLOBIN DECREASED [None]
  - PLATELET COUNT INCREASED [None]
